FAERS Safety Report 25124163 (Version 1)
Quarter: 2025Q1

REPORT INFORMATION
  Report Type: Spontaneous
  Country: GB (occurrence: GB)
  Receive Date: 20250326
  Receipt Date: 20250326
  Transmission Date: 20250408
  Serious: Yes (Other)
  Sender: CIPLA
  Company Number: GB-CIPLA LTD.-2025GB03492

PATIENT

DRUGS (1)
  1. FINASTERIDE [Suspect]
     Active Substance: FINASTERIDE
     Indication: Alopecia
     Route: 065
     Dates: start: 20250127, end: 20250316

REACTIONS (1)
  - Loss of libido [Not Recovered/Not Resolved]

NARRATIVE: CASE EVENT DATE: 20250305
